FAERS Safety Report 9262639 (Version 2)
Quarter: 2013Q3

REPORT INFORMATION
  Report Type: Spontaneous
  Country: US (occurrence: None)
  Receive Date: 20130426
  Receipt Date: 20130719
  Transmission Date: 20140515
  Serious: Yes (Disabling, Other)
  Sender: FDA-Public Use
  Company Number: ACO_35595_2013

PATIENT
  Age: 57 Year
  Sex: Female

DRUGS (3)
  1. AMPYRA [Suspect]
     Indication: GAIT DISTURBANCE
     Dates: end: 20130409
  2. OTHER ANTIDEPRESSANTS [Concomitant]
  3. OTHER THERAPEUTIC PRODUCTS [Concomitant]

REACTIONS (7)
  - Movement disorder [None]
  - Speech disorder [None]
  - Therapeutic response unexpected [None]
  - Asthenia [None]
  - Drug ineffective [None]
  - Dysgraphia [None]
  - Hemiparesis [None]
